FAERS Safety Report 6186693-X (Version None)
Quarter: 2009Q2

REPORT INFORMATION
  Report Type: 
  Country: None (occurrence: None)
  Receive Date: 20090512
  Receipt Date: 20090430
  Transmission Date: 20091009
  Serious: Yes (Hospitalization, Other)
  Sender: FDA-Public Use
  Company Number: PHHY2009GB17160

PATIENT
  Sex: Female

DRUGS (1)
  1. SYNTOMETRINE [Suspect]
     Indication: LABOUR INDUCTION
     Dosage: UNK
     Dates: start: 20070411

REACTIONS (4)
  - DRUG ADMINISTRATION ERROR [None]
  - DRUG EXPOSURE DURING PREGNANCY [None]
  - INTRA-UTERINE DEATH [None]
  - UTERINE CONTRACTIONS DURING PREGNANCY [None]
